FAERS Safety Report 10720958 (Version 2)
Quarter: 2015Q2

REPORT INFORMATION
  Report Type: Spontaneous
  Country: US (occurrence: US)
  Receive Date: 20150119
  Receipt Date: 20150520
  Transmission Date: 20150821
  Serious: Yes (Other)
  Sender: FDA-Public Use
  Company Number: US-PFIZER INC-2015021640

PATIENT
  Age: 41 Year
  Sex: Female
  Weight: 102.9 kg

DRUGS (20)
  1. FAMOTIDINE. [Concomitant]
     Active Substance: FAMOTIDINE
     Dosage: 20 MG, TWICE A DAY
  2. CLONIDINE HCL [Concomitant]
     Active Substance: CLONIDINE HYDROCHLORIDE
     Dosage: 0.2 MG, TWICE A DAY
  3. TIZANIDINE HCL [Concomitant]
     Active Substance: TIZANIDINE HYDROCHLORIDE
     Dosage: 4 MG TABLET, 1/2 TABLET FOUR TIMES A DAY
  4. LYRICA [Suspect]
     Active Substance: PREGABALIN
     Dosage: 50 MG, 3X/DAY
  5. CYCLOBENZAPRINE HCL [Concomitant]
     Active Substance: CYCLOBENZAPRINE HYDROCHLORIDE
     Dosage: 10 MG, QHS ONCE A DAY AT BEDTIME
  6. HUMULIN R [Concomitant]
     Active Substance: INSULIN HUMAN
     Dosage: 100 U SOLUTION PER SLIDING SCALE AC TID
  7. ZOLPIDEM TARTRATE. [Concomitant]
     Active Substance: ZOLPIDEM TARTRATE
     Dosage: 5 MG, ONCE A DAY
  8. TEGRETOL [Concomitant]
     Active Substance: CARBAMAZEPINE
     Dosage: 200 MG 1 TABLET IN AM, 2 TABLETS QHS TWICE A DAY
  9. LISINOPRIL. [Concomitant]
     Active Substance: LISINOPRIL
     Dosage: 20 MG, BID
  10. PHENYTOIN SODIUM. [Concomitant]
     Active Substance: PHENYTOIN SODIUM
     Dosage: 100 MG SOLUTION 5 CAPSULES AT BEDTIME ONCE A DAY
  11. LASIX [Concomitant]
     Active Substance: FUROSEMIDE
     Dosage: 20 MG, ONCE A DAY
  12. COGENTIN [Concomitant]
     Active Substance: BENZTROPINE MESYLATE
     Dosage: 1 MG, TWICE A DAY
  13. HALDOL [Concomitant]
     Active Substance: HALOPERIDOL
     Dosage: 150 MG, ONCE A MONTH
  14. ESTRADIOL. [Concomitant]
     Active Substance: ESTRADIOL
     Dosage: 1 MG, ONCE A DAY
  15. PROMETHAZINE HCL [Concomitant]
     Active Substance: PROMETHAZINE HYDROCHLORIDE
     Dosage: 25 MG, AS NEEDED (Q 6-8 HOURS PRN N/V)
  16. HUMULIN 70/30 [Concomitant]
     Active Substance: INSULIN HUMAN
     Dosage: 100 UNIT/MI. *I.MCS* SUSPENSION, 60 UNITS QAM, 30 UNITS QHS TWICE A DAY
  17. MELOXICAM. [Concomitant]
     Active Substance: MELOXICAM
     Dosage: 7.5 MG, TWICE A DAY
  18. NEXIUM [Concomitant]
     Active Substance: ESOMEPRAZOLE MAGNESIUM
     Dosage: 40 MG, ONCE A DAY
  19. ALLERGY RELIEF NOS [Concomitant]
     Active Substance: ACETAMINOPHEN\CHLORPHENIRAMINE MALEATE\PHENYLEPHRINE HYDROCHLORIDE OR CETIRIZINE HYDROCHLORIDE OR CHLORPHENIRAMINE MALEATE OR CLEMASTINE FUMARATE OR DIPHENHYDRAMINE HYDROCHLORIDE OR FEXOFENADINE HYDROCHLORIDE OR LORATADINE
     Dosage: 25 MG, TWICE A DAY
  20. POTASSIUM CHLORIDE ER [Concomitant]
     Active Substance: POTASSIUM CHLORIDE
     Dosage: 10 MEQ, ONCE A DAY

REACTIONS (11)
  - Pain [Unknown]
  - Ear pain [Unknown]
  - Odynophagia [Unknown]
  - Lymphadenopathy [Unknown]
  - Body mass index increased [Unknown]
  - Oropharyngeal pain [Unknown]
  - Ingrowing nail [Unknown]
  - Hypoaesthesia [Unknown]
  - Condition aggravated [Unknown]
  - Acute sinusitis [Unknown]
  - Tympanic membrane hyperaemia [Unknown]
